FAERS Safety Report 5287645-4 (Version None)
Quarter: 2007Q1

REPORT INFORMATION
  Report Type: 
  Country: None (occurrence: None)
  Receive Date: 20070105
  Receipt Date: 20060922
  Transmission Date: 20070707
  Serious: Yes (Other)
  Sender: FDA-Public Use
  Company Number: US-JNJFOC-20060905411

PATIENT
  Sex: Female

DRUGS (2)
  1. ULTRAM SR [Suspect]
     Indication: PELVIC PAIN
     Dosage: 100 MG, 1 IN 1 DAY, ORAL
     Route: 048
  2. WELLBUTRIN ER (BUPROPION HYDROCHLORIDE) [Concomitant]

REACTIONS (1)
  - CONVULSION [None]
